FAERS Safety Report 18575218 (Version 3)
Quarter: 2020Q4

REPORT INFORMATION
  Report Type: Spontaneous
  Country: BR (occurrence: BR)
  Receive Date: 20201203
  Receipt Date: 20201210
  Transmission Date: 20210114
  Serious: Yes (Other)
  Sender: FDA-Public Use
  Company Number: BR-PFIZER INC-2020473158

PATIENT
  Sex: Male

DRUGS (2)
  1. LEUPRORELINA [LEUPRORELIN] [Concomitant]
     Indication: PROSTATE CANCER
     Dosage: EACH 28 DAYS
     Dates: start: 2019
  2. CAVERJECT [Suspect]
     Active Substance: ALPROSTADIL
     Indication: ERECTILE DYSFUNCTION
     Dosage: UNK
     Dates: start: 202003

REACTIONS (1)
  - No adverse event [Unknown]
